FAERS Safety Report 9439657 (Version 1)
Quarter: 2013Q3

REPORT INFORMATION
  Report Type: Spontaneous
  Country: US (occurrence: US)
  Receive Date: 20130805
  Receipt Date: 20130805
  Transmission Date: 20140515
  Serious: No
  Sender: FDA-Public Use
  Company Number: US-PFIZER INC-2013225162

PATIENT
  Age: 55 Year
  Sex: Female
  Weight: 159 kg

DRUGS (2)
  1. CELEBREX [Suspect]
     Indication: INFLAMMATION
     Dosage: 200MG DAILY
     Route: 048
     Dates: start: 2013, end: 201307
  2. CEFTRIAXONE SODIUM [Concomitant]
     Indication: LYME DISEASE
     Dosage: UNK

REACTIONS (5)
  - Product formulation issue [Unknown]
  - Hypersensitivity [Unknown]
  - Gastrointestinal disorder [Unknown]
  - Diarrhoea [Unknown]
  - Abdominal discomfort [Unknown]
